FAERS Safety Report 9007059 (Version 1)
Quarter: 2013Q1

REPORT INFORMATION
  Report Type: Spontaneous
  Country: US (occurrence: US)
  Receive Date: 20130110
  Receipt Date: 20130110
  Transmission Date: 20140127
  Serious: Yes (Other)
  Sender: FDA-Public Use
  Company Number: US-JNJFOC-20130103889

PATIENT
  Sex: Female

DRUGS (2)
  1. DOXORUBICIN [Suspect]
     Indication: OVARIAN CANCER
     Route: 042
  2. BEVACIZUMAB [Suspect]
     Indication: OVARIAN CANCER
     Dosage: ON CYCLES 2-7 EVERY 21 DAYS
     Route: 065

REACTIONS (9)
  - Ileus [Unknown]
  - Ejection fraction decreased [Unknown]
  - Headache [Unknown]
  - Speech disorder [Unknown]
  - Glomerulonephropathy [Unknown]
  - Gastrointestinal disorder [Unknown]
  - Palmar-plantar erythrodysaesthesia syndrome [Unknown]
  - Mucosal inflammation [Unknown]
  - Hypertension [Unknown]
